FAERS Safety Report 4939439-4 (Version None)
Quarter: 2006Q1

REPORT INFORMATION
  Report Type: 
  Country: None (occurrence: None)
  Receive Date: 20060306
  Receipt Date: 20060222
  Transmission Date: 20060701
  Serious: Yes (Hospitalization)
  Sender: FDA-Public Use
  Company Number: HQWYE945023FEB06

PATIENT
  Age: 57 Year
  Sex: Male

DRUGS (10)
  1. RAPAMUNE [Suspect]
     Indication: PROPHYLAXIS AGAINST TRANSPLANT REJECTION
     Dosage: 2 MG 1X PER 1 DAY ORAL
     Route: 048
     Dates: start: 20060125, end: 20060210
  2. MYCOPHENOLATE MOFETIL (MYCOPHENOLATE MOFETIL) [Concomitant]
  3. PREDNISONE TAB [Concomitant]
  4. FLUVASTATIN SODIUM (FLUVASTATIN SODIUM) [Concomitant]
  5. CARVEDILOL [Concomitant]
  6. ASPIRIN [Concomitant]
  7. OMEPRAZOLE [Concomitant]
  8. GLIMEPIRIDE [Concomitant]
  9. INSULIN (INSULIN) [Concomitant]
  10. COTRIM [Concomitant]

REACTIONS (2)
  - HAEMODYNAMIC INSTABILITY [None]
  - HEART TRANSPLANT REJECTION [None]
